FAERS Safety Report 8545571-9 (Version None)
Quarter: 2012Q3

REPORT INFORMATION
  Report Type: 
  Country: None (occurrence: None)
  Receive Date: 20120727
  Receipt Date: 20111021
  Transmission Date: 20120928
  Serious: No
  Sender: FDA-Public Use
  Company Number: US-ASTRAZENECA-2011SE63809

PATIENT
  Age: 55 Year
  Sex: Female
  Weight: 56.7 kg

DRUGS (3)
  1. ESTROGEN [Concomitant]
  2. SEROQUEL [Suspect]
     Indication: BIPOLAR DISORDER
     Dosage: 50-100 MG AT NIGHT
     Route: 048
     Dates: start: 20100501
  3. PROGETERONE [Concomitant]

REACTIONS (3)
  - EUSTACHIAN TUBE OBSTRUCTION [None]
  - LIP DRY [None]
  - DRY MOUTH [None]
